FAERS Safety Report 6091195-5 (Version None)
Quarter: 2009Q1

REPORT INFORMATION
  Report Type: 
  Country: None (occurrence: None)
  Receive Date: 20090225
  Receipt Date: 20090223
  Transmission Date: 20090719
  Serious: Yes (Hospitalization)
  Sender: FDA-Public Use
  Company Number: US-BAYER-200840085NA

PATIENT
  Age: 88 Year
  Sex: Male
  Weight: 67 kg

DRUGS (2)
  1. AVELOX [Suspect]
     Indication: SINUSITIS
     Dates: start: 20081118
  2. AVELOX [Suspect]
     Dates: start: 20081118

REACTIONS (7)
  - HAEMATOCHEZIA [None]
  - HYPERKALAEMIA [None]
  - HYPERNATRAEMIA [None]
  - INTESTINAL PERFORATION [None]
  - MALAISE [None]
  - RECTAL HAEMORRHAGE [None]
  - RENAL DISORDER [None]
